FAERS Safety Report 6291239-1 (Version None)
Quarter: 2009Q3

REPORT INFORMATION
  Report Type: 
  Country: None (occurrence: None)
  Receive Date: 20090729
  Receipt Date: 20090729
  Transmission Date: 20100115
  Serious: No
  Sender: FDA-Public Use
  Company Number: None

PATIENT
  Age: 40 Year
  Sex: Female
  Weight: 86.637 kg

DRUGS (1)
  1. LEVAQUIN [Suspect]
     Indication: PNEUMONIA
     Dosage: 1 TABLET ONE DAILY
     Dates: start: 20090702, end: 20090707

REACTIONS (7)
  - ARTHRITIS [None]
  - DYSSTASIA [None]
  - EMOTIONAL DISORDER [None]
  - FATIGUE [None]
  - MUSCULOSKELETAL PAIN [None]
  - OEDEMA PERIPHERAL [None]
  - THINKING ABNORMAL [None]
